FAERS Safety Report 15549752 (Version 1)
Quarter: 2018Q4

REPORT INFORMATION
  Report Type: Spontaneous
  Country: BR (occurrence: BR)
  Receive Date: 20181025
  Receipt Date: 20181025
  Transmission Date: 20190205
  Serious: Yes (Other)
  Sender: FDA-Public Use
  Company Number: BR-ROCHE-2204019

PATIENT
  Sex: Female

DRUGS (2)
  1. LORAX [Concomitant]
     Active Substance: LORAZEPAM
     Route: 065
     Dates: start: 2012
  2. RIVOTRIL [Suspect]
     Active Substance: CLONAZEPAM
     Indication: PRODUCT USED FOR UNKNOWN INDICATION
     Route: 065

REACTIONS (8)
  - Subcutaneous abscess [Unknown]
  - Adrenal mass [Unknown]
  - Malaise [Unknown]
  - Cataract [Unknown]
  - Emotional disorder [Unknown]
  - Hernia [Unknown]
  - Drug ineffective [Unknown]
  - Blister [Unknown]
